FAERS Safety Report 21246799 (Version 2)
Quarter: 2022Q4

REPORT INFORMATION
  Report Type: Spontaneous
  Country: IN (occurrence: IN)
  Receive Date: 20220824
  Receipt Date: 20221018
  Transmission Date: 20230113
  Serious: Yes (Other)
  Sender: FDA-Public Use
  Company Number: IN-ALKEM LABORATORIES LIMITED-IN-ALKEM-2022-08840

PATIENT
  Age: 29 Year
  Sex: Male

DRUGS (1)
  1. TRIAMCINOLONE ACETONIDE [Suspect]
     Active Substance: TRIAMCINOLONE ACETONIDE
     Indication: Alopecia
     Dosage: UNK (INJECTION)
     Route: 065
     Dates: start: 202011

REACTIONS (1)
  - Mycobacterium abscessus infection [Recovered/Resolved]

NARRATIVE: CASE EVENT DATE: 20210101
